FAERS Safety Report 4640315-5 (Version None)
Quarter: 2005Q2

REPORT INFORMATION
  Report Type: 
  Country: None (occurrence: None)
  Receive Date: 20050420
  Receipt Date: 20041018
  Transmission Date: 20051028
  Serious: No
  Sender: FDA-Public Use
  Company Number: US-GLAXOSMITHKLINE-A0530337A

PATIENT
  Sex: Female

DRUGS (1)
  1. ESKALITH CR [Suspect]
     Indication: DRUG USE FOR UNKNOWN INDICATION
     Dosage: 450MG UNKNOWN
     Route: 048

REACTIONS (3)
  - DIZZINESS [None]
  - NAUSEA [None]
  - PHARMACEUTICAL PRODUCT COMPLAINT [None]
